FAERS Safety Report 7900327-2 (Version None)
Quarter: 2011Q4

REPORT INFORMATION
  Report Type: 
  Country: None (occurrence: None)
  Receive Date: 20111108
  Receipt Date: 20111031
  Transmission Date: 20120403
  Serious: Yes (Life-Threatening, Hospitalization)
  Sender: FDA-Public Use
  Company Number: US-UCBSA-044545

PATIENT
  Age: 73 Year
  Sex: Female
  Weight: 61.5 kg

DRUGS (8)
  1. MULTIPLE VITAMIN [Concomitant]
     Indication: SUPPLEMENTATION THERAPY
     Dosage: 1 TABLET ONCE A DAY
     Dates: start: 19910101
  2. PREDNISONE [Concomitant]
     Indication: RHEUMATOID ARTHRITIS
     Dates: start: 20080401
  3. CALCIUM CARBONATE [Concomitant]
     Indication: SUPPLEMENTATION THERAPY
     Dates: start: 19910101
  4. VITAMIN D [Concomitant]
     Indication: VITAMIN D DEFICIENCY
     Dates: start: 20110106
  5. IBUPROFEN (ADVIL) [Concomitant]
     Indication: RHEUMATOID ARTHRITIS
     Dates: start: 20090601
  6. IRON [Concomitant]
     Indication: ANAEMIA
     Dates: start: 20100823
  7. CERTOLIZUMAB PEGOL [Suspect]
     Indication: RHEUMATOID ARTHRITIS
     Dosage: 200 OR 400 MG, NO. OF DOSES RECEIVED : 9
     Route: 058
     Dates: start: 20110629
  8. ACETAMINOPHEN AND HYDROCODONE BITARTRATE [Concomitant]
     Indication: PAIN
     Dosage: 500/5 MG
     Dates: start: 20090401

REACTIONS (1)
  - EPISTAXIS [None]
